FAERS Safety Report 7653633-3 (Version None)
Quarter: 2011Q3

REPORT INFORMATION
  Report Type: 
  Country: None (occurrence: None)
  Receive Date: 20110803
  Receipt Date: 20110803
  Transmission Date: 20111222
  Serious: No
  Sender: FDA-Public Use
  Company Number: None

PATIENT
  Age: 22 Year
  Sex: Female
  Weight: 52.163 kg

DRUGS (1)
  1. DEPO-PROVERA [Suspect]

REACTIONS (13)
  - BACK PAIN [None]
  - ARTHRALGIA [None]
  - JOINT SWELLING [None]
  - NAUSEA [None]
  - GASTROOESOPHAGEAL REFLUX DISEASE [None]
  - SKIN DISORDER [None]
  - VOMITING [None]
  - ABDOMINAL PAIN UPPER [None]
  - BLOOD GLUCOSE DECREASED [None]
  - ANXIETY [None]
  - DIZZINESS [None]
  - ACTIVITIES OF DAILY LIVING IMPAIRED [None]
  - POLYMENORRHOEA [None]
